FAERS Safety Report 12683268 (Version 2)
Quarter: 2016Q4

REPORT INFORMATION
  Report Type: Spontaneous
  Country: US (occurrence: US)
  Receive Date: 20160825
  Receipt Date: 20161214
  Transmission Date: 20170207
  Serious: No
  Sender: FDA-Public Use
  Company Number: US-PFIZER INC-2016402170

PATIENT
  Age: 72 Year
  Sex: Female

DRUGS (2)
  1. FASLODEX [Suspect]
     Active Substance: FULVESTRANT
     Dosage: 10 ML, MONTHLY [INJECT 10 ML (500 MG TOTAL) INTRAMUSCULARLY 1 TIME A MONTH]
     Route: 030
  2. IBRANCE [Suspect]
     Active Substance: PALBOCICLIB
     Indication: BREAST CANCER
     Dosage: 125 MG, EVERY 21 DAYS [TAKE 1 CAPSULE BY MOUTH DAILY FOR 21 DAYS ON THEN TAKE SEVEN DAYS OFF]
     Route: 048
     Dates: start: 20160503

REACTIONS (1)
  - Platelet count decreased [Unknown]
